FAERS Safety Report 15507235 (Version 1)
Quarter: 2018Q4

REPORT INFORMATION
  Report Type: Spontaneous
  Country: FR (occurrence: FR)
  Receive Date: 20181016
  Receipt Date: 20181016
  Transmission Date: 20190205
  Serious: Yes (Life-Threatening)
  Sender: FDA-Public Use
  Company Number: FR-PFIZER INC-2018413905

PATIENT
  Age: 72 Year
  Sex: Male
  Weight: 65 kg

DRUGS (20)
  1. METHYLPREDNISOLONE. [Concomitant]
     Active Substance: METHYLPREDNISOLONE
     Dosage: 60 MG, 1X/DAY
     Route: 042
     Dates: start: 20180808
  2. BRICANYL [Concomitant]
     Active Substance: TERBUTALINE SULFATE
     Dosage: 20 MG, 1X/DAY
     Route: 055
  3. FUROSEMIDE. [Concomitant]
     Active Substance: FUROSEMIDE
     Dosage: 60 MG IN THE MORNING AND 40 MG AT MIDDAY
     Route: 048
  4. IPRATROPIUM [Concomitant]
     Active Substance: IPRATROPIUM
     Dosage: 1.5 MG, 1X/DAY
     Route: 055
  5. AMLODIPINE [Concomitant]
     Active Substance: AMLODIPINE BESYLATE
     Dosage: 10 MG, 1X/DAY
     Route: 048
  6. NOVORAPID [Concomitant]
     Active Substance: INSULIN ASPART
     Dosage: IN FUNCTION OF PRE-PRANDIAL GLYCAEMIAS
     Route: 058
  7. ALDACTONE [Concomitant]
     Active Substance: SPIRONOLACTONE
     Dosage: 12.5 MG, 1X/DAY
     Route: 048
  8. JANUVIA [Concomitant]
     Active Substance: SITAGLIPTIN PHOSPHATE
     Dosage: 100 MG, 1X/DAY
     Route: 048
  9. LOVENOX [Concomitant]
     Active Substance: ENOXAPARIN SODIUM
     Dosage: 12000 IU, 1X/DAY
     Route: 058
  10. LYRICA [Concomitant]
     Active Substance: PREGABALIN
     Dosage: 25 MG, 1X/DAY
     Route: 048
  11. VALSARTAN. [Concomitant]
     Active Substance: VALSARTAN
     Dosage: 80 MG, 1X/DAY
     Route: 048
  12. EMEND [Concomitant]
     Active Substance: APREPITANT
     Dosage: 1 DF, 1X/DAY
     Route: 048
     Dates: start: 20180808
  13. DIFFU K [Concomitant]
     Active Substance: POTASSIUM CHLORIDE
     Dosage: ACCORDING TO THE SERUM POTASSIUM
     Route: 048
  14. ATARAX [HYDROXYZINE] [Concomitant]
     Dosage: 25 MG, 1X/DAY
     Route: 048
  15. ONDANSETRON [Concomitant]
     Active Substance: ONDANSETRON
     Dosage: 16 MG, 1X/DAY
     Route: 042
     Dates: start: 20180808
  16. MECIR [Concomitant]
     Active Substance: TAMSULOSIN HYDROCHLORIDE
     Dosage: 0.4 MG, 1X/DAY
     Route: 048
  17. CARBOPLATIN. [Suspect]
     Active Substance: CARBOPLATIN
     Dosage: 556 MG, UNK
     Route: 041
     Dates: start: 20180808
  18. ETOPOSIDE. [Suspect]
     Active Substance: ETOPOSIDE
     Dosage: 138 MG, 1X/DAY (INFUSION ON D2 STOPPED BEFORE ITS END)
     Route: 041
     Dates: start: 20180808, end: 20180809
  19. SPORANOX [Concomitant]
     Active Substance: ITRACONAZOLE
     Dosage: 100 MG, 1X/DAY
     Route: 048
  20. PRIMPERAN [Concomitant]
     Active Substance: METOCLOPRAMIDE HYDROCHLORIDE
     Dosage: 30 MG, 1X/DAY
     Route: 042
     Dates: start: 20180808

REACTIONS (1)
  - Tumour lysis syndrome [Recovered/Resolved with Sequelae]

NARRATIVE: CASE EVENT DATE: 20180809
